FAERS Safety Report 14781136 (Version 4)
Quarter: 2018Q3

REPORT INFORMATION
  Report Type: Report from Study
  Country: None (occurrence: US)
  Receive Date: 20180419
  Receipt Date: 20180723
  Transmission Date: 20181010
  Serious: Yes (Hospitalization)
  Sender: FDA-Public Use
  Company Number: US-VIFOR (INTERNATIONAL) INC.-VIT-2018-03250

PATIENT
  Sex: Male
  Weight: 102.15 kg

DRUGS (4)
  1. VELTASSA [Suspect]
     Active Substance: PATIROMER
     Indication: HYPERKALAEMIA
     Route: 048
     Dates: start: 20180221
  2. BUMETANIDE. [Concomitant]
     Active Substance: BUMETANIDE
     Dates: start: 20180206
  3. CARVEDILOL. [Concomitant]
     Active Substance: CARVEDILOL
     Dosage: HALF A TABLET
     Dates: start: 20180206
  4. NIFEDIPINE. [Concomitant]
     Active Substance: NIFEDIPINE
     Dates: start: 20180206

REACTIONS (7)
  - Renal disorder [Recovering/Resolving]
  - Hepatitis C [Unknown]
  - Hypertension [Recovered/Resolved]
  - End stage renal disease [Unknown]
  - Malaise [Unknown]
  - Skin discolouration [Unknown]
  - Blood potassium increased [Recovered/Resolved]

NARRATIVE: CASE EVENT DATE: 2018
